FAERS Safety Report 19823205 (Version 2)
Quarter: 2021Q3

REPORT INFORMATION
  Report Type: Report from Study
  Country: US (occurrence: US)
  Receive Date: 20210913
  Receipt Date: 20210930
  Transmission Date: 20211014
  Serious: No
  Sender: FDA-Public Use
  Company Number: NVSC2021US207046

PATIENT
  Sex: Female

DRUGS (1)
  1. ENTRESTO [Suspect]
     Active Substance: SACUBITRIL\VALSARTAN
     Indication: PRODUCT USED FOR UNKNOWN INDICATION
     Dosage: 1 DF, BID,(24/26MG)
     Route: 048

REACTIONS (3)
  - Cough [Not Recovered/Not Resolved]
  - Fatigue [Unknown]
  - Product dose omission issue [Unknown]
